FAERS Safety Report 6141155-0 (Version None)
Quarter: 2009Q2

REPORT INFORMATION
  Report Type: 
  Country: None (occurrence: None)
  Receive Date: 20090402
  Receipt Date: 20090323
  Transmission Date: 20091009
  Serious: Yes (Hospitalization)
  Sender: FDA-Public Use
  Company Number: FR-NOVOPROD-285526

PATIENT
  Age: 82 Year
  Sex: Female

DRUGS (9)
  1. REPAGLINIDE [Suspect]
     Indication: TYPE 2 DIABETES MELLITUS
     Dosage: 6 MG, QD
     Route: 048
     Dates: start: 20080101, end: 20090130
  2. INSULATARD FLEXPEN [Suspect]
     Indication: TYPE 2 DIABETES MELLITUS
     Dosage: 20 IU, QD
     Route: 058
     Dates: end: 20090101
  3. METFORMIN HCL [Suspect]
     Indication: DRUG USE FOR UNKNOWN INDICATION
     Dosage: 2 DF
     Route: 048
  4. KARDEGIC                           /00002703/ [Concomitant]
     Dosage: 160 MG, QD
     Route: 048
  5. ALTEIS [Concomitant]
     Dosage: 40 MG, UNK
     Route: 048
  6. ACEBUTOLOL [Concomitant]
  7. ARIMIDEX [Concomitant]
  8. PRAVASTATIN                        /00880402/ [Concomitant]
  9. LANSOPRAZOLE [Concomitant]

REACTIONS (3)
  - CEREBRAL HAEMORRHAGE [None]
  - HYPOGLYCAEMIA [None]
  - VERTIGO [None]
